FAERS Safety Report 15850387 (Version 2)
Quarter: 2019Q1

REPORT INFORMATION
  Report Type: Spontaneous
  Country: US (occurrence: US)
  Receive Date: 20190121
  Receipt Date: 20190125
  Transmission Date: 20190417
  Serious: Yes (Other)
  Sender: FDA-Public Use
  Company Number: US-PFIZER INC-2019021209

PATIENT
  Age: 58 Year
  Sex: Male

DRUGS (1)
  1. LYRICA [Suspect]
     Active Substance: PREGABALIN
     Dosage: 300 MG, UNK

REACTIONS (6)
  - Drug ineffective [Unknown]
  - Myalgia [Unknown]
  - Bedridden [Unknown]
  - Spinal cord disorder [Unknown]
  - Gait disturbance [Unknown]
  - Bone pain [Unknown]
